FAERS Safety Report 6972706-1 (Version None)
Quarter: 2010Q3

REPORT INFORMATION
  Report Type: 
  Country: None (occurrence: None)
  Receive Date: 20100909
  Receipt Date: 20090817
  Transmission Date: 20110219
  Serious: No
  Sender: FDA-Public Use
  Company Number: US-KINGPHARMUSA00001-K200900997

PATIENT
  Age: 45 Year
  Sex: Female

DRUGS (6)
  1. CYTOMEL [Suspect]
     Indication: HYPOTHYROIDISM
     Dosage: 5 MCG, QD
     Route: 048
     Dates: start: 20090401, end: 20090601
  2. CYTOMEL [Suspect]
     Dosage: 5 MCG, BID
     Route: 048
     Dates: start: 20090601, end: 20090701
  3. HUMALOG [Concomitant]
     Indication: TYPE 1 DIABETES MELLITUS
     Dosage: UNK
     Route: 058
  4. LANTUS [Concomitant]
     Indication: TYPE 1 DIABETES MELLITUS
     Dosage: UNK
     Route: 058
  5. MULTI-VITAMIN [Concomitant]
     Dosage: UNK
     Route: 048
  6. MINERALS NOS [Concomitant]
     Dosage: UNK
     Route: 048

REACTIONS (2)
  - ALOPECIA [None]
  - OESTROGENIC EFFECT [None]
